FAERS Safety Report 12632898 (Version 2)
Quarter: 2016Q3

REPORT INFORMATION
  Report Type: Spontaneous
  Country: US (occurrence: US)
  Receive Date: 20160808
  Receipt Date: 20160808
  Transmission Date: 20161109
  Serious: No
  Sender: FDA-Public Use
  Company Number: US-BEH-2015057475

PATIENT
  Sex: Female
  Weight: 87 kg

DRUGS (28)
  1. HYDROCHLOROTHIAZIDE. [Concomitant]
     Active Substance: HYDROCHLOROTHIAZIDE
  2. NEURONTIN [Concomitant]
     Active Substance: GABAPENTIN
  3. ADVAIR HFA [Concomitant]
     Active Substance: FLUTICASONE PROPIONATE\SALMETEROL XINAFOATE
  4. EPIPEN [Concomitant]
     Active Substance: EPINEPHRINE
  5. TYLENOL [Concomitant]
     Active Substance: ACETAMINOPHEN
  6. FOSAMAX [Concomitant]
     Active Substance: ALENDRONATE SODIUM
  7. LYSINE [Concomitant]
     Active Substance: LYSINE
  8. PANTOPRAZOLE [Concomitant]
     Active Substance: PANTOPRAZOLE SODIUM
  9. OS-CAL 500+D [Concomitant]
  10. FLONASE [Concomitant]
     Active Substance: FLUTICASONE PROPIONATE
  11. ASPIRIN. [Concomitant]
     Active Substance: ASPIRIN
  12. RANITIDINE. [Concomitant]
     Active Substance: RANITIDINE
  13. HIZENTRA [Suspect]
     Active Substance: HUMAN IMMUNOGLOBULIN G
     Indication: IMMUNODEFICIENCY COMMON VARIABLE
     Route: 058
  14. SINGULAIR [Concomitant]
     Active Substance: MONTELUKAST SODIUM
  15. CLARITIN [Concomitant]
     Active Substance: LORATADINE
  16. HIZENTRA [Suspect]
     Active Substance: HUMAN IMMUNOGLOBULIN G
     Route: 058
  17. STOOL SOFTENER [Concomitant]
     Active Substance: DOCUSATE CALCIUM
  18. SIMVASTATIN. [Concomitant]
     Active Substance: SIMVASTATIN
  19. XOPENEX HFA [Concomitant]
     Active Substance: LEVALBUTEROL TARTRATE
  20. COMPLETE MULTIVITAMIN [Concomitant]
     Active Substance: VITAMINS
  21. ALBUTEROL SULFATE. [Concomitant]
     Active Substance: ALBUTEROL SULFATE
  22. VITAMIN B12 [Concomitant]
     Active Substance: CYANOCOBALAMIN
  23. BLACK COHOSH [Concomitant]
     Active Substance: BLACK COHOSH
  24. VITAMIN D2 [Concomitant]
     Active Substance: ERGOCALCIFEROL
  25. PULMICORT TURBUHALER [Concomitant]
     Active Substance: BUDESONIDE
  26. HIZENTRA [Suspect]
     Active Substance: HUMAN IMMUNOGLOBULIN G
     Route: 058
  27. DIPHENHYDRAMINE. [Concomitant]
     Active Substance: DIPHENHYDRAMINE
  28. SKELAXIN [Concomitant]
     Active Substance: METAXALONE

REACTIONS (1)
  - Sinusitis [Unknown]
